FAERS Safety Report 16275418 (Version 1)
Quarter: 2019Q2

REPORT INFORMATION
  Report Type: Spontaneous
  Country: US (occurrence: US)
  Receive Date: 20190401
  Receipt Date: 20190401
  Transmission Date: 20190711
  Serious: No
  Sender: FDA-Public Use
  Company Number: None

PATIENT
  Age: 30 Year
  Sex: Female

DRUGS (2)
  1. ATAZANAVIR. [Suspect]
     Active Substance: ATAZANAVIR
     Route: 048
     Dates: start: 20180202
  2. GENVOYA [Suspect]
     Active Substance: COBICISTAT\ELVITEGRAVIR\EMTRICITABINE\TENOFOVIR ALAFENAMIDE FUMARATE
     Indication: HIV TEST
     Route: 048
     Dates: start: 20180202

REACTIONS (3)
  - Memory impairment [None]
  - Learning disorder [None]
  - Reading disorder [None]

NARRATIVE: CASE EVENT DATE: 20190301
